FAERS Safety Report 9371153 (Version 1)
Quarter: 2013Q2

REPORT INFORMATION
  Report Type: Spontaneous
  Country: NO (occurrence: NO)
  Receive Date: 20130627
  Receipt Date: 20130627
  Transmission Date: 20140414
  Serious: Yes (Hospitalization)
  Sender: FDA-Public Use
  Company Number: NO-ACCORD-018240

PATIENT
  Age: 67 Year
  Sex: Female

DRUGS (1)
  1. NALTREXONE [Suspect]
     Indication: MULTIPLE SCLEROSIS
     Dosage: LOW-DOSE NALTREXONE
     Route: 048
     Dates: start: 20130601, end: 20130601

REACTIONS (4)
  - Akathisia [Unknown]
  - Pruritus [Unknown]
  - Dyspnoea [Unknown]
  - Off label use [Unknown]
